FAERS Safety Report 4715256-5 (Version None)
Quarter: 2005Q3

REPORT INFORMATION
  Report Type: 
  Country: None (occurrence: None)
  Receive Date: 20050715
  Receipt Date: 20050629
  Transmission Date: 20060218
  Serious: Yes (Hospitalization)
  Sender: FDA-Public Use
  Company Number: JP-SANOFI-SYNTHELABO-F01200501133

PATIENT
  Sex: Female

DRUGS (5)
  1. OXALIPLATIN [Suspect]
     Indication: COLON CANCER
     Route: 042
     Dates: start: 20050427, end: 20050427
  2. FLUOROURACIL [Suspect]
     Indication: COLON CANCER
     Dosage: 400 MG/M2 IV BOLUS AND 600 MG/M2 IV 22 HOURS CONTINUOUS INFUSION, Q2W
     Route: 040
     Dates: start: 20050427, end: 20050427
  3. FLUOROURACIL [Suspect]
     Dosage: 596MG/BODY=400MG/M2 IN BOLUS AND 894MG/BODY=600MG/M2
     Route: 041
     Dates: start: 20050427, end: 20050428
  4. ISOVORIN [Suspect]
     Indication: COLON CANCER
     Route: 042
     Dates: start: 20050427, end: 20050428
  5. PRIMAXIN [Concomitant]
     Route: 065
     Dates: start: 20050511, end: 20050516

REACTIONS (9)
  - DISEASE PROGRESSION [None]
  - DISSEMINATED INTRAVASCULAR COAGULATION [None]
  - LEUKOPENIA [None]
  - MULTI-ORGAN FAILURE [None]
  - NAUSEA [None]
  - NEUTROPENIA [None]
  - PANCYTOPENIA [None]
  - PYREXIA [None]
  - THROMBOCYTOPENIA [None]
